FAERS Safety Report 25287095 (Version 5)
Quarter: 2025Q4

REPORT INFORMATION
  Report Type: Spontaneous
  Country: US (occurrence: US)
  Receive Date: 20250509
  Receipt Date: 20251224
  Transmission Date: 20260118
  Serious: Yes (Other)
  Sender: BRISTOL-MYERS SQUIBB COMPANY
  Company Number: US-BRISTOL-MYERS SQUIBB COMPANY-2025-067599

PATIENT
  Age: 77 Year
  Sex: Female

DRUGS (1)
  1. REVLIMID [Suspect]
     Active Substance: LENALIDOMIDE
     Indication: Myelodysplastic syndrome
     Route: 048

REACTIONS (6)
  - Hyperhidrosis [Unknown]
  - Tremor [Recovering/Resolving]
  - Nausea [Not Recovered/Not Resolved]
  - Arthropathy [Recovering/Resolving]
  - Diarrhoea [Unknown]
  - Fatigue [Unknown]
